FAERS Safety Report 5703936-4 (Version None)
Quarter: 2008Q2

REPORT INFORMATION
  Report Type: 
  Country: None (occurrence: None)
  Receive Date: 20080409
  Receipt Date: 20080326
  Transmission Date: 20081010
  Serious: Yes (Other)
  Sender: FDA-Public Use
  Company Number: PHHY2008JP03911

PATIENT
  Age: 70 Year
  Sex: Male

DRUGS (4)
  1. VISUDYNE [Suspect]
     Indication: MACULAR DEGENERATION
     Dosage: 6 MG/M^2 ONCE IV
     Route: 042
     Dates: start: 20060213, end: 20060213
  2. CINAL [Concomitant]
  3. KALLIKREIN [Concomitant]
  4. ANTIDEPRESSANTS [Concomitant]

REACTIONS (1)
  - DEPRESSION [None]
